FAERS Safety Report 11500090 (Version 1)
Quarter: 2015Q3

REPORT INFORMATION
  Report Type: Spontaneous
  Country: SI (occurrence: SI)
  Receive Date: 20150914
  Receipt Date: 20150914
  Transmission Date: 20151125
  Serious: Yes (Other)
  Sender: FDA-Public Use
  Company Number: SI-VIIV HEALTHCARE LIMITED-SI2015GSK040722

PATIENT
  Sex: Male

DRUGS (11)
  1. COMBIVIR [Suspect]
     Active Substance: LAMIVUDINE\ZIDOVUDINE
     Indication: HIV INFECTION
     Dosage: UNK
     Dates: start: 2009
  2. KALETRA [Suspect]
     Active Substance: LOPINAVIR\RITONAVIR
     Indication: HIV INFECTION
     Dosage: UNK
     Dates: start: 2009
  3. SULFAMETHOXAZOLE AND TRIMETHOPRIM [Concomitant]
     Active Substance: SULFAMETHOXAZOLE\TRIMETHOPRIM
  4. KALETRA [Suspect]
     Active Substance: LOPINAVIR\RITONAVIR
     Indication: ACQUIRED IMMUNODEFICIENCY SYNDROME
  5. LEUCOVORIN. [Suspect]
     Active Substance: LEUCOVORIN
     Indication: EYE INFECTION TOXOPLASMAL
     Dosage: UNK
  6. CLINDAMYCIN [Suspect]
     Active Substance: CLINDAMYCIN\CLINDAMYCIN PHOSPHATE
     Indication: EYE INFECTION TOXOPLASMAL
     Dosage: UNK
  7. KIVEXA [Suspect]
     Active Substance: ABACAVIR SULFATE\LAMIVUDINE
     Indication: HIV INFECTION
     Dosage: UNK
     Dates: start: 2009
  8. KIVEXA [Suspect]
     Active Substance: ABACAVIR SULFATE\LAMIVUDINE
     Indication: ACQUIRED IMMUNODEFICIENCY SYNDROME
  9. SULFADIAZINE. [Suspect]
     Active Substance: SULFADIAZINE
     Indication: EYE INFECTION TOXOPLASMAL
     Dosage: UNK
  10. PYRIMETHAMINE [Suspect]
     Active Substance: PYRIMETHAMINE
     Indication: EYE INFECTION TOXOPLASMAL
     Dosage: UNK
  11. COMBIVIR [Suspect]
     Active Substance: LAMIVUDINE\ZIDOVUDINE
     Indication: ACQUIRED IMMUNODEFICIENCY SYNDROME

REACTIONS (2)
  - Pancytopenia [Unknown]
  - Depression [Unknown]
